FAERS Safety Report 10341642 (Version 2)
Quarter: 2014Q3

REPORT INFORMATION
  Report Type: Report from Study
  Country: NL (occurrence: NL)
  Receive Date: 20140725
  Receipt Date: 20140820
  Transmission Date: 20150326
  Serious: Yes (Death, Other)
  Sender: FDA-Public Use
  Company Number: PHHY2014NL091225

PATIENT
  Age: 47 Year
  Sex: Female

DRUGS (18)
  1. CEFUROXIM//CEFUROXIME SODIUM [Concomitant]
     Dosage: 1500 MG, 3DD1
  2. METOCLOPRAMIDE HCL [Concomitant]
     Active Substance: METOCLOPRAMIDE HYDROCHLORIDE
     Dosage: 10 MG, 3DD1
  3. OMEPRAZOLE. [Concomitant]
     Active Substance: OMEPRAZOLE
     Dosage: 2 MG/ML, 1DD20ML
  4. OXAZEPAM. [Concomitant]
     Active Substance: OXAZEPAM
     Dosage: 10 MG, IF NECESSARY
  5. SALBUTAMOL [Concomitant]
     Active Substance: ALBUTEROL
     Dosage: 100MCG/DOSES, 2DD2 DOSES
  6. HALOPERIDOL. [Concomitant]
     Active Substance: HALOPERIDOL
     Dosage: 1 MG, IF NECESSARY
  7. NYSTATINE [Concomitant]
     Dosage: 100.00 E= 1ML, 4DD5ML
  8. ACETYLSALICYLIC ACID [Concomitant]
     Active Substance: ASPIRIN
     Dosage: 80 MG, 1DD1
  9. SERETIDE [Concomitant]
     Active Substance: FLUTICASONE FUROATE\SALMETEROL XINAFOATE
     Dosage: 25/250MCG, 2DD2 DOSES
  10. SANDOSTATIN LAR DEPOT [Suspect]
     Active Substance: OCTREOTIDE ACETATE
     Dosage: 30 MG, ONCE PER 3 WEEKS
  11. FRAGMIN [Concomitant]
     Active Substance: DALTEPARIN SODIUM
     Dosage: 5000IE= 0,2ML, 1DD1
  12. X-PRAEP [Concomitant]
     Dosage: 2 MG/ML, 1DD15ML
  13. SANDOSTATIN LAR DEPOT [Suspect]
     Active Substance: OCTREOTIDE ACETATE
     Indication: PANCREATIC NEUROENDOCRINE TUMOUR
     Dosage: 30 MG/2 ML, ONCE EVERY 4 WEEKS
     Route: 030
  14. NOVOMIX [Concomitant]
     Active Substance: INSULIN ASPART
     Dosage: 30/ 300IE = 3ML, 1DD 24 IE + 1DD 16IE ACCORDING TO SCHEDULE
  15. DEXAMETHASON//DEXAMETHASONE SODIUM PHOSPHATE [Concomitant]
     Dosage: 1.5 MG, 1DD1
  16. MOVICOLON [Concomitant]
     Active Substance: POLYETHYLENE GLYCOL 3350\POTASSIUM CHLORIDE\SODIUM BICARBONATE\SODIUM CHLORIDE
     Dosage: UNK UKN, 1DD1
  17. NOZINAN                                 /NET/ [Concomitant]
     Active Substance: LEVOMEPROMAZINE
     Dosage: 25 MG, 3DD HALF A TABLET
  18. ORAMORPH SR SUSTAINED RELEASE [Concomitant]
     Active Substance: MORPHINE SULFATE
     Dosage: 10MG=5ML, 4DD5ML

REACTIONS (4)
  - Malignant neoplasm progression [Unknown]
  - Metastasis [Unknown]
  - Cachexia [Unknown]
  - Death [Fatal]

NARRATIVE: CASE EVENT DATE: 20140710
